FAERS Safety Report 9937543 (Version 2)
Quarter: 2014Q1

REPORT INFORMATION
  Report Type: Spontaneous
  Country: US (occurrence: US)
  Receive Date: 20140303
  Receipt Date: 20140312
  Transmission Date: 20141002
  Serious: No
  Sender: FDA-Public Use
  Company Number: US-BIOGENIDEC-2014BI017181

PATIENT
  Age: 49 Year
  Sex: Female

DRUGS (5)
  1. AVONEX [Suspect]
     Indication: MULTIPLE SCLEROSIS
     Route: 030
     Dates: start: 20040730, end: 20060703
  2. AVONEX [Suspect]
     Indication: MULTIPLE SCLEROSIS
     Route: 030
     Dates: start: 20070928, end: 20100114
  3. AVONEX [Suspect]
     Indication: MULTIPLE SCLEROSIS
     Route: 030
     Dates: start: 20100714
  4. AVONEX [Suspect]
     Indication: MULTIPLE SCLEROSIS
     Route: 030
     Dates: start: 20120727
  5. IBUPROFEN [Concomitant]
     Indication: PREMEDICATION

REACTIONS (10)
  - Injection site vesicles [Recovered/Resolved]
  - Haemorrhagic diathesis [Recovered/Resolved]
  - Increased tendency to bruise [Unknown]
  - Injection site bruising [Recovered/Resolved]
  - Lower extremity mass [Unknown]
  - Adverse drug reaction [Unknown]
  - Fear of injection [Unknown]
  - Pain in extremity [Unknown]
  - Injection site pain [Unknown]
  - Influenza like illness [Recovered/Resolved]
